FAERS Safety Report 6637034-2 (Version None)
Quarter: 2010Q1

REPORT INFORMATION
  Report Type: 
  Country: None (occurrence: None)
  Receive Date: 20100301
  Receipt Date: 20090304
  Transmission Date: 20100710
  Serious: Yes (Death, Life-Threatening)
  Sender: FDA-Public Use
  Company Number: RB-11002-2009

PATIENT
  Age: 15 Year
  Sex: Female
  Weight: 53.0709 kg

DRUGS (7)
  1. SUBOXONE [Suspect]
     Indication: DRUG ABUSE
  2. CLONAZEPAM [Suspect]
     Indication: DRUG ABUSE
  3. MARIJUANA [Suspect]
     Indication: DRUG ABUSE
  4. AMFETAMINE [Suspect]
     Indication: DRUG USE FOR UNKNOWN INDICATION
  5. HYDROXYZINE [Suspect]
     Indication: DRUG USE FOR UNKNOWN INDICATION
  6. ALBUTEROL [Concomitant]
  7. FLOVENT [Concomitant]

REACTIONS (5)
  - DRUG TOXICITY [None]
  - EUPHORIC MOOD [None]
  - HYPERVENTILATION [None]
  - LOSS OF CONSCIOUSNESS [None]
  - RESPIRATORY ARREST [None]
